FAERS Safety Report 18214477 (Version 1)
Quarter: 2020Q3

REPORT INFORMATION
  Report Type: Spontaneous
  Country: US (occurrence: US)
  Receive Date: 20200831
  Receipt Date: 20200831
  Transmission Date: 20201103
  Serious: Yes (Other)
  Sender: FDA-Public Use
  Company Number: US-SA-2020SA110633

PATIENT

DRUGS (2)
  1. TOUJEO [Suspect]
     Active Substance: INSULIN GLARGINE
     Indication: TYPE 2 DIABETES MELLITUS
     Dosage: 40 IU AM AND 60 IU PM, BID
     Route: 065
     Dates: start: 2000
  2. TOUJEO [Suspect]
     Active Substance: INSULIN GLARGINE
     Dosage: 48 IU MORNING AND 60 IU EVENING, BID, BID
     Route: 065
     Dates: start: 20200822

REACTIONS (2)
  - Inappropriate schedule of product administration [Unknown]
  - Blindness [Unknown]
